FAERS Safety Report 6201679-4 (Version None)
Quarter: 2009Q2

REPORT INFORMATION
  Report Type: 
  Country: None (occurrence: None)
  Receive Date: 20090526
  Receipt Date: 20090514
  Transmission Date: 20091009
  Serious: Yes (Other)
  Sender: FDA-Public Use
  Company Number: CA-BAYER-200832917NA

PATIENT
  Age: 38 Year
  Sex: Female
  Weight: 66 kg

DRUGS (1)
  1. YASMIN [Suspect]
     Indication: VAGINAL HAEMORRHAGE
     Route: 048
     Dates: end: 20070301

REACTIONS (7)
  - ABDOMINAL PAIN [None]
  - FATIGUE [None]
  - HEADACHE [None]
  - HYPOMENORRHOEA [None]
  - HYPOPITUITARISM [None]
  - OLIGOMENORRHOEA [None]
  - VAGINAL HAEMORRHAGE [None]
